FAERS Safety Report 9348746 (Version 2)
Quarter: 2013Q3

REPORT INFORMATION
  Report Type: Spontaneous
  Country: US (occurrence: US)
  Receive Date: 20130614
  Receipt Date: 20130805
  Transmission Date: 20140515
  Serious: Yes (Other)
  Sender: FDA-Public Use
  Company Number: US-PFIZER INC-2013176040

PATIENT
  Age: 26 Year
  Sex: Female
  Weight: 75 kg

DRUGS (2)
  1. LEVOTHYROXINE SODIUM [Suspect]
     Indication: AUTOIMMUNE THYROIDITIS
     Dosage: UNK
  2. LEVOTHYROXINE SODIUM [Suspect]
     Indication: THYROID HORMONE REPLACEMENT THERAPY

REACTIONS (9)
  - Heart rate increased [Unknown]
  - Lethargy [Unknown]
  - Depression [Unknown]
  - Weight increased [Unknown]
  - Cold sweat [Unknown]
  - Alopecia [Unknown]
  - Pyrexia [Unknown]
  - Headache [Unknown]
  - Drug ineffective [Unknown]
